FAERS Safety Report 14342685 (Version 1)
Quarter: 2018Q1

REPORT INFORMATION
  Report Type: Other
  Country: IT (occurrence: IT)
  Receive Date: 20180102
  Receipt Date: 20180102
  Transmission Date: 20180509
  Serious: Yes (Hospitalization)
  Sender: FDA-Public Use
  Company Number: IT-ACTELION-A-CH2017-164603

PATIENT
  Age: 31 Year
  Sex: Female

DRUGS (6)
  1. FUROSEMIDE. [Concomitant]
     Active Substance: FUROSEMIDE
     Route: 048
  2. EPOPROSTENOL SODIUM. [Suspect]
     Active Substance: EPOPROSTENOL SODIUM
     Dosage: 40 NG/KG, PER MIN
     Route: 042
  3. EPOPROSTENOL SODIUM. [Suspect]
     Active Substance: EPOPROSTENOL SODIUM
     Dosage: 20 NG/KG, PER MIN
     Route: 042
  4. EPOPROSTENOL SODIUM. [Suspect]
     Active Substance: EPOPROSTENOL SODIUM
     Dosage: 20 NG/KG, PER MIN
     Route: 042
  5. HEPARIN [Concomitant]
     Active Substance: HEPARIN SODIUM
  6. EPOPROSTENOL SODIUM. [Suspect]
     Active Substance: EPOPROSTENOL SODIUM
     Indication: PULMONARY HYPERTENSION
     Dosage: UNK
     Route: 042

REACTIONS (7)
  - Exposure during pregnancy [Recovered/Resolved]
  - Live birth [Unknown]
  - Hypotension [Recovered/Resolved]
  - Right ventricular dilatation [Recovering/Resolving]
  - Right ventricular dysfunction [Recovering/Resolving]
  - Cardiac arrest [Recovered/Resolved]
  - Caesarean section [Unknown]
